FAERS Safety Report 7569542-4 (Version None)
Quarter: 2011Q2

REPORT INFORMATION
  Report Type: 
  Country: None (occurrence: None)
  Receive Date: 20110624
  Receipt Date: 20110621
  Transmission Date: 20111010
  Serious: Yes (Life-Threatening)
  Sender: FDA-Public Use
  Company Number: GB-BRISTOL-MYERS SQUIBB COMPANY-15739345

PATIENT
  Age: 66 Year
  Sex: Male

DRUGS (10)
  1. MYLOTARG [Suspect]
     Dosage: NO OF COURSES:2
     Dates: start: 20110404, end: 20110412
  2. VITAMIN D [Concomitant]
     Dates: start: 20110427, end: 20110502
  3. LEVOTHYROXINE SODIUM [Concomitant]
     Dosage: 150MCG
     Dates: start: 20110426, end: 20110502
  4. GENTAMICIN [Concomitant]
     Dates: start: 20110426, end: 20110502
  5. MULTI-VITAMINS [Concomitant]
     Dosage: 1DF=1 CAP
     Dates: start: 20110427, end: 20110502
  6. CYTARABINE [Suspect]
     Dosage: NO OF COURSES:2
     Dates: start: 20110404, end: 20110412
  7. DAUNORUBICIN HCL [Suspect]
     Dosage: NO OF COURSES:2
     Dates: start: 20110404, end: 20110412
  8. AMBISOME [Suspect]
     Dates: start: 20110426, end: 20110503
  9. ONDANSETRON [Concomitant]
     Dates: start: 20110428
  10. ETOPOSIDE [Suspect]
     Dosage: NO OF COURSES:2
     Dates: start: 20110404, end: 20110412

REACTIONS (3)
  - HYPOKALAEMIA [None]
  - PETECHIAE [None]
  - NEUTROPENIA [None]
